FAERS Safety Report 11201571 (Version 3)
Quarter: 2015Q3

REPORT INFORMATION
  Report Type: Spontaneous
  Country: US (occurrence: None)
  Receive Date: 20150617
  Receipt Date: 20150702
  Transmission Date: 20151125
  Serious: Yes (Other)
  Sender: FDA-Public Use
  Company Number: ADR-2015-01138

PATIENT
  Age: 38 Year
  Sex: Male

DRUGS (1)
  1. GABLOFEN [Suspect]
     Active Substance: BACLOFEN
     Indication: MUSCLE SPASTICITY
     Dates: start: 2013, end: 20150608

REACTIONS (6)
  - Burn infection [None]
  - Device extrusion [None]
  - Catheter site erosion [None]
  - Catheter site discharge [None]
  - Implant site extravasation [None]
  - Implant site infection [None]
